FAERS Safety Report 8820323 (Version 1)
Quarter: 2012Q4

REPORT INFORMATION
  Report Type: 
  Country: US (occurrence: US)
  Receive Date: 20121002
  Receipt Date: 20121002
  Transmission Date: 20130627
  Serious: No
  Sender: FDA-Public Use
  Company Number: US-009507513-1208USA011239

PATIENT
  Sex: Female
  Weight: 18.59 kg

DRUGS (1)
  1. SINGULAIR [Suspect]
     Indication: ASTHMA
     Dosage: 5 mg, qd
     Route: 048
     Dates: start: 20120229, end: 20120815

REACTIONS (2)
  - Blood urea increased [Unknown]
  - Overdose [Unknown]
